FAERS Safety Report 8377427-9 (Version None)
Quarter: 2012Q2

REPORT INFORMATION
  Report Type: 
  Country: None (occurrence: None)
  Receive Date: 20120522
  Receipt Date: 20110901
  Transmission Date: 20120825
  Serious: No
  Sender: FDA-Public Use
  Company Number: US-ASTRAZENECA-2011SE46703

PATIENT
  Age: 60 Year
  Sex: Female
  Weight: 64.4 kg

DRUGS (13)
  1. ASPIRIN [Concomitant]
  2. WELLBUTRIN SR [Concomitant]
  3. ALBUTEROL [Concomitant]
  4. CELEXA [Concomitant]
  5. ADVAIR DISKUS 100/50 [Concomitant]
  6. PRILOSEC [Suspect]
     Route: 048
  7. FOSAMAX [Concomitant]
  8. LISINOPRIL [Concomitant]
  9. SPIRIVA [Concomitant]
  10. ALEVE SODIUM [Concomitant]
  11. NEXIUM [Concomitant]
     Indication: GASTROOESOPHAGEAL REFLUX DISEASE
  12. IPRATROPIUM BROMIDE [Concomitant]
  13. VENTOLIN HFA [Concomitant]

REACTIONS (14)
  - PHARYNGITIS [None]
  - DRUG INEFFECTIVE [None]
  - BARRETT'S OESOPHAGUS [None]
  - DEPRESSION [None]
  - DYSPHAGIA [None]
  - HYPERTENSION [None]
  - DYSPNOEA [None]
  - HYPOXIA [None]
  - GASTROOESOPHAGEAL REFLUX DISEASE [None]
  - CHEST PAIN [None]
  - CHRONIC OBSTRUCTIVE PULMONARY DISEASE [None]
  - OTITIS MEDIA [None]
  - TOBACCO ABUSE [None]
  - DRY MOUTH [None]
